FAERS Safety Report 25544857 (Version 1)
Quarter: 2025Q3

REPORT INFORMATION
  Report Type: Spontaneous
  Country: US (occurrence: US)
  Receive Date: 20250711
  Receipt Date: 20250711
  Transmission Date: 20251021
  Serious: Yes (Death, Hospitalization, Other)
  Sender: AMGEN
  Company Number: US-AMGEN-USASP2025132351

PATIENT

DRUGS (3)
  1. PROLIA [Suspect]
     Active Substance: DENOSUMAB
     Indication: Osteoporosis
     Route: 065
  2. XGEVA [Suspect]
     Active Substance: DENOSUMAB
     Indication: Metastases to bone
     Route: 065
  3. PEMBROLIZUMAB [Concomitant]
     Active Substance: PEMBROLIZUMAB

REACTIONS (10)
  - Death [Fatal]
  - Adverse event [Unknown]
  - Breast cancer metastatic [Unknown]
  - Hepatitis [Unknown]
  - Pneumonitis [Unknown]
  - Colitis [Unknown]
  - Peripheral motor neuropathy [Unknown]
  - Arthralgia [Unknown]
  - Anaemia [Unknown]
  - Fatigue [Unknown]
